FAERS Safety Report 7516004-6 (Version None)
Quarter: 2011Q2

REPORT INFORMATION
  Report Type: 
  Country: None (occurrence: None)
  Receive Date: 20110601
  Receipt Date: 20100614
  Transmission Date: 20111010
  Serious: Yes (Hospitalization, Other)
  Sender: FDA-Public Use
  Company Number: US-BAYER-200938285NA

PATIENT
  Age: 25 Year
  Sex: Female
  Weight: 61.364 kg

DRUGS (6)
  1. YAZ [Suspect]
     Indication: CONTRACEPTION
     Route: 048
     Dates: start: 20070101, end: 20070101
  2. YAZ [Suspect]
     Indication: PREMENSTRUAL SYNDROME
  3. CENTRUM [Concomitant]
     Indication: VITAMIN SUPPLEMENTATION
     Route: 048
     Dates: start: 20060101
  4. ANTIBIOTICS [Concomitant]
     Indication: PRODUCT USED FOR UNKNOWN INDICATION
     Route: 065
  5. YAZ [Suspect]
  6. IBUPROFEN [Concomitant]
     Indication: PRODUCT USED FOR UNKNOWN INDICATION
     Route: 065

REACTIONS (10)
  - PAIN IN EXTREMITY [None]
  - PULMONARY EMBOLISM [None]
  - CHEST PAIN [None]
  - DYSPNOEA [None]
  - BURNING SENSATION [None]
  - CHEST DISCOMFORT [None]
  - HEADACHE [None]
  - OEDEMA PERIPHERAL [None]
  - SUPERFICIAL VEIN PROMINENCE [None]
  - DEEP VEIN THROMBOSIS [None]
